FAERS Safety Report 7543652-X (Version None)
Quarter: 2011Q2

REPORT INFORMATION
  Report Type: 
  Country: None (occurrence: None)
  Receive Date: 20110613
  Receipt Date: 20030508
  Transmission Date: 20111010
  Serious: Yes (Other)
  Sender: FDA-Public Use
  Company Number: PHHO2003CA05973

PATIENT
  Sex: Male

DRUGS (4)
  1. CLONAZEPAM [Concomitant]
     Dosage: .5 MG, QD
  2. CLOZAPINE [Suspect]
     Dosage: 300 MG, QD
  3. LIPITOR [Concomitant]
     Indication: DYSLIPIDAEMIA
     Dosage: UNKNOWN
  4. CLOZAPINE [Suspect]
     Dosage: 400 MG, QD

REACTIONS (1)
  - ELECTROCARDIOGRAM QT PROLONGED [None]
